FAERS Safety Report 4777543-4 (Version None)
Quarter: 2005Q3

REPORT INFORMATION
  Report Type: 
  Country: None (occurrence: None)
  Receive Date: 20050923
  Receipt Date: 20050726
  Transmission Date: 20060218
  Serious: Yes (Other)
  Sender: FDA-Public Use
  Company Number: US-BRISTOL-MYERS SQUIBB COMPANY-13051560

PATIENT
  Age: 48 Year
  Sex: Female

DRUGS (1)
  1. BUSPAR [Suspect]

REACTIONS (2)
  - CONVULSION [None]
  - HOMICIDAL IDEATION [None]
